FAERS Safety Report 17386877 (Version 1)
Quarter: 2020Q1

REPORT INFORMATION
  Report Type: Spontaneous
  Country: US (occurrence: US)
  Receive Date: 20200206
  Receipt Date: 20200206
  Transmission Date: 20200409
  Serious: No
  Sender: FDA-Public Use
  Company Number: US-TARO-2020TAR00043

PATIENT

DRUGS (2)
  1. DAPSONE GEL 5% [Suspect]
     Active Substance: DAPSONE
     Indication: PRODUCT USED FOR UNKNOWN INDICATION
     Dosage: UNK, EVERY 48 HOURS (SINCE OCT ABOUT EVERY 2 DAYS)
     Route: 065
  2. ADAPALENE GEL 0.3% [Suspect]
     Active Substance: ADAPALENE
     Indication: PRODUCT USED FOR UNKNOWN INDICATION
     Dosage: UNK, EVERY 48 HOURS (SINCE OCT ABOUT EVERY 2 DAYS)
     Route: 065

REACTIONS (2)
  - Skin exfoliation [Unknown]
  - Burning sensation [Unknown]

NARRATIVE: CASE EVENT DATE: 201912
